FAERS Safety Report 12082773 (Version 1)
Quarter: 2016Q1

REPORT INFORMATION
  Report Type: Spontaneous
  Country: US (occurrence: None)
  Receive Date: 20160212
  Receipt Date: 20160212
  Transmission Date: 20160526
  Serious: Yes (Other)
  Sender: FDA-Public Use
  Company Number: None

PATIENT
  Age: 57 Year
  Sex: Female
  Weight: 71.22 kg

DRUGS (15)
  1. TIZANADINE [Concomitant]
  2. C [Concomitant]
  3. IBUPROFEN. [Concomitant]
     Active Substance: IBUPROFEN
  4. MIDAZOLAM [Suspect]
     Active Substance: MIDAZOLAM\MIDAZOLAM HYDROCHLORIDE
     Indication: DENTAL CARE
     Dosage: ONCE BY DENTIST ONE TIME INJECTION ITO  VEIN??ONE TIME IV
     Route: 042
  5. MULTI-VITAMIN [Concomitant]
     Active Substance: .ALPHA.-TOCOPHEROL ACETATE, DL-\ASCORBIC ACID\CYANOCOBALAMIN\FLUORIDE ION\FOLIC ACID\NIACIN\PYRIDOXINE\RIBOFLAVIN\THIAMINE\VITAMIN A\VITAMIN D
  6. VITAMIN B COMPLEX [Concomitant]
     Active Substance: CYANOCOBALAMIN\DEXPANTHENOL\NIACINAMIDE\PYRIDOXINE HYDROCHLORIDE\RIBOFLAVIN 5^-PHOSPHATE SODIUM\THIAMINE HYDROCHLORIDE\VITAMIN B COMPLEX
  7. PROBIOTICS [Concomitant]
     Active Substance: PROBIOTICS NOS
  8. MIDAZOLAM [Suspect]
     Active Substance: MIDAZOLAM\MIDAZOLAM HYDROCHLORIDE
     Indication: RELAXATION THERAPY
     Dosage: ONCE BY DENTIST ONE TIME INJECTION ITO  VEIN??ONE TIME IV
     Route: 042
  9. FLECTOR [Concomitant]
     Active Substance: DICLOFENAC EPOLAMINE
  10. CAL/MAG/ZINC [Concomitant]
  11. FENTANYL TRANSDERMAL SYSTEM [Concomitant]
     Active Substance: FENTANYL
  12. CRESTOR [Concomitant]
     Active Substance: ROSUVASTATIN CALCIUM
  13. ASA [Concomitant]
     Active Substance: ASPIRIN
  14. VISTARIL [Concomitant]
     Active Substance: HYDROXYZINE PAMOATE
  15. VIT. D. [Concomitant]

REACTIONS (6)
  - Fear [None]
  - Blood pressure increased [None]
  - Hallucination [None]
  - Heart rate increased [None]
  - Mental disorder [None]
  - Delusion [None]

NARRATIVE: CASE EVENT DATE: 20160209
